FAERS Safety Report 23367078 (Version 1)
Quarter: 2024Q1

REPORT INFORMATION
  Report Type: Spontaneous
  Country: US (occurrence: None)
  Receive Date: 20240104
  Receipt Date: 20240104
  Transmission Date: 20240410
  Serious: Yes (Disabling)
  Sender: FDA-Public Use
  Company Number: None

PATIENT
  Age: 76 Year
  Sex: Male
  Weight: 78.75 kg

DRUGS (8)
  1. MYRBETRIQ [Suspect]
     Active Substance: MIRABEGRON
     Indication: Nocturia
     Dosage: OTHER QUANTITY : 1 TABLET(S);?FREQUENCY : AT BEDTIME;?
     Route: 048
     Dates: start: 20230811, end: 20230819
  2. MYRBETRIQ [Suspect]
     Active Substance: MIRABEGRON
     Indication: Polyuria
  3. ATORVASTATIN [Concomitant]
     Active Substance: ATORVASTATIN
  4. carboxymethylcellulose 0.5 % Soln [Concomitant]
  5. LEFLUNOMIDE [Concomitant]
     Active Substance: LEFLUNOMIDE
  6. Xiidra 5 % Soln [Concomitant]
  7. LIFITEGRAST [Concomitant]
     Active Substance: LIFITEGRAST
  8. One a day vitamin men over 50 [Concomitant]

REACTIONS (7)
  - Fatigue [None]
  - Muscular weakness [None]
  - Tremor [None]
  - Pain in extremity [None]
  - Balance disorder [None]
  - Balance disorder [None]
  - Urine flow decreased [None]

NARRATIVE: CASE EVENT DATE: 20230821
